FAERS Safety Report 19800782 (Version 1)
Quarter: 2021Q3

REPORT INFORMATION
  Report Type: Spontaneous
  Country: IN (occurrence: IN)
  Receive Date: 20210907
  Receipt Date: 20210907
  Transmission Date: 20211014
  Serious: Yes (Death, Life-Threatening, Other)
  Sender: FDA-Public Use
  Company Number: IN-JNJFOC-20210857891

PATIENT
  Age: 50 Year
  Sex: Male

DRUGS (2)
  1. NIZRAL [Suspect]
     Active Substance: KETOCONAZOLE
     Indication: RHINOSPORIDIOSIS
     Route: 065
  2. CYCLOSERINE. [Suspect]
     Active Substance: CYCLOSERINE
     Indication: RHINOSPORIDIOSIS
     Route: 065

REACTIONS (1)
  - Treatment failure [Fatal]
